FAERS Safety Report 20590938 (Version 1)
Quarter: 2022Q1

REPORT INFORMATION
  Report Type: Spontaneous
  Country: US (occurrence: US)
  Receive Date: 20220314
  Receipt Date: 20220314
  Transmission Date: 20220423
  Serious: No
  Sender: FDA-Public Use
  Company Number: US-SA-SAC20220308001167

PATIENT
  Age: 70 Year
  Sex: Female

DRUGS (2)
  1. DUPIXENT [Suspect]
     Active Substance: DUPILUMAB
     Indication: Asthma
     Dosage: 300 MG, QOW
     Route: 058
  2. COVID-19 VACCINE [Concomitant]

REACTIONS (6)
  - Arthritis [Unknown]
  - Oedema [Unknown]
  - Weight increased [Unknown]
  - Dyspnoea [Unknown]
  - Peripheral swelling [Unknown]
  - Paraesthesia [Unknown]
